FAERS Safety Report 8263936-X (Version None)
Quarter: 2012Q2

REPORT INFORMATION
  Report Type: 
  Country: None (occurrence: None)
  Receive Date: 20120406
  Receipt Date: 20120329
  Transmission Date: 20120825
  Serious: Yes (Other)
  Sender: FDA-Public Use
  Company Number: US-BIOGENIDEC-2012BI003264

PATIENT
  Age: 64 Year
  Sex: Male

DRUGS (1)
  1. TYSABRI [Suspect]
     Indication: MULTIPLE SCLEROSIS
     Route: 042
     Dates: start: 20111206, end: 20120103

REACTIONS (4)
  - ADVERSE DRUG REACTION [None]
  - LIGAMENT RUPTURE [None]
  - ANAEMIA MACROCYTIC [None]
  - LYMPHOCYTOSIS [None]
